FAERS Safety Report 12870512 (Version 1)
Quarter: 2016Q4

REPORT INFORMATION
  Report Type: Spontaneous
  Country: GB (occurrence: GB)
  Receive Date: 20161021
  Receipt Date: 20161021
  Transmission Date: 20170207
  Serious: Yes (Life-Threatening, Hospitalization, Disabling, Other)
  Sender: FDA-Public Use
  Company Number: GB-PFIZER INC-2016484257

PATIENT
  Age: 30 Year
  Sex: Female
  Weight: 102.5 kg

DRUGS (2)
  1. CHAMPIX [Suspect]
     Active Substance: VARENICLINE TARTRATE
     Indication: SMOKING CESSATION THERAPY
     Dosage: UNK, ^25 MG UNIT DOSE^
     Route: 048
     Dates: start: 20140901, end: 20141231
  2. TOPIRAMAT [Concomitant]
     Active Substance: TOPIRAMATE
     Dosage: UNK

REACTIONS (2)
  - Epilepsy [Unknown]
  - Clonic convulsion [Unknown]

NARRATIVE: CASE EVENT DATE: 2014
